FAERS Safety Report 13720796 (Version 1)
Quarter: 2017Q3

REPORT INFORMATION
  Report Type: Spontaneous
  Country: US (occurrence: US)
  Receive Date: 20170706
  Receipt Date: 20170706
  Transmission Date: 20171127
  Serious: Yes (Other)
  Sender: FDA-Public Use
  Company Number: US-ALVOGEN-2017-ALVOGEN-092581

PATIENT
  Sex: Male
  Weight: 93.89 kg

DRUGS (5)
  1. ATENOLOL. [Suspect]
     Active Substance: ATENOLOL
     Indication: HYPERTENSION
     Route: 048
     Dates: start: 1994
  2. IMIPRAMINE [Concomitant]
     Active Substance: IMIPRAMINE
     Indication: PROSTATECTOMY
     Route: 048
     Dates: start: 1997
  3. FENOFIBRIC ACID. [Concomitant]
     Active Substance: FENOFIBRIC ACID
     Indication: BLOOD TRIGLYCERIDES ABNORMAL
     Route: 048
     Dates: start: 2015
  4. NIACIN. [Concomitant]
     Active Substance: NIACIN
     Indication: BLOOD CHOLESTEROL ABNORMAL
     Route: 048
  5. ICAPS [Concomitant]
     Active Substance: MINERALS\VITAMINS
     Indication: MACULAR DEGENERATION
     Route: 048

REACTIONS (4)
  - Diabetes mellitus [Unknown]
  - Prostatectomy [Unknown]
  - Renal impairment [Unknown]
  - Prostatomegaly [Unknown]

NARRATIVE: CASE EVENT DATE: 1997
